FAERS Safety Report 22180925 (Version 1)
Quarter: 2023Q2

REPORT INFORMATION
  Report Type: Spontaneous
  Country: US (occurrence: None)
  Receive Date: 20230405
  Receipt Date: 20230405
  Transmission Date: 20230722
  Serious: No
  Sender: FDA-Public Use
  Company Number: None

PATIENT
  Sex: 0

DRUGS (3)
  1. DIMETHYL FUMARATE [Suspect]
     Active Substance: DIMETHYL FUMARATE
  2. COPAXONE [Suspect]
     Active Substance: GLATIRAMER ACETATE
  3. PFIZER-BIONTECH COVID-19 VACCINE [Suspect]
     Active Substance: TOZINAMERAN

REACTIONS (8)
  - Muscle spasms [None]
  - Rash [None]
  - Urticaria [None]
  - Flushing [None]
  - Transient ischaemic attack [None]
  - Gait disturbance [None]
  - Dysgraphia [None]
  - Visual impairment [None]
